FAERS Safety Report 4820672-7 (Version None)
Quarter: 2005Q4

REPORT INFORMATION
  Report Type: 
  Country: None (occurrence: None)
  Receive Date: 20051104
  Receipt Date: 20051026
  Transmission Date: 20060501
  Serious: Yes (Hospitalization, Other)
  Sender: FDA-Public Use
  Company Number: FR-JNJFOC-20051100022

PATIENT
  Sex: Female
  Weight: 73 kg

DRUGS (1)
  1. RISPERDAL CONSTA [Suspect]
     Route: 030

REACTIONS (3)
  - DELUSION [None]
  - HYPERPROLACTINAEMIA [None]
  - PITUITARY TUMOUR BENIGN [None]
